FAERS Safety Report 12182291 (Version 7)
Quarter: 2021Q4

REPORT INFORMATION
  Report Type: Spontaneous
  Country: CA (occurrence: CA)
  Receive Date: 20160316
  Receipt Date: 20211029
  Transmission Date: 20220303
  Serious: Yes (Hospitalization, Other)
  Sender: FDA-Public Use
  Company Number: CA-ROCHE-1723643

PATIENT
  Age: 55 Year
  Sex: Female

DRUGS (34)
  1. ACTEMRA [Suspect]
     Active Substance: TOCILIZUMAB
     Indication: Product used for unknown indication
     Route: 058
     Dates: start: 201404, end: 201405
  2. ACTEMRA [Suspect]
     Active Substance: TOCILIZUMAB
     Dosage: THERAPY DURATION: 2.0 MONTH(S)
     Route: 058
  3. ENBREL [Suspect]
     Active Substance: ETANERCEPT
     Indication: Rheumatoid arthritis
     Route: 065
  4. ENBREL [Suspect]
     Active Substance: ETANERCEPT
     Route: 058
  5. ENBREL [Suspect]
     Active Substance: ETANERCEPT
     Route: 058
  6. FOLIC ACID [Suspect]
     Active Substance: FOLIC ACID
     Indication: Product used for unknown indication
     Route: 065
  7. FOLIC ACID [Suspect]
     Active Substance: FOLIC ACID
     Route: 066
  8. METHOTREXATE SODIUM [Suspect]
     Active Substance: METHOTREXATE SODIUM
     Indication: Rheumatoid arthritis
     Dosage: (2.5 MG- 8 TABLETS ORALLY ONCE WEEKLY)
     Route: 048
     Dates: start: 1993, end: 20160201
  9. METHOTREXATE SODIUM [Suspect]
     Active Substance: METHOTREXATE SODIUM
     Dosage: SOLUTION FOR INJECTION
     Route: 065
     Dates: start: 20160201
  10. METHOTREXATE SODIUM [Suspect]
     Active Substance: METHOTREXATE SODIUM
     Dosage: THERAPY DURATION: 24.0 YEAR(S)
     Route: 048
  11. PLAQUENIL [Suspect]
     Active Substance: HYDROXYCHLOROQUINE SULFATE
     Indication: Product used for unknown indication
     Route: 048
  12. SIMPONI [Suspect]
     Active Substance: GOLIMUMAB
     Indication: Product used for unknown indication
     Route: 058
  13. SIMPONI [Suspect]
     Active Substance: GOLIMUMAB
     Dosage: SOLUTION SUBCUTANEOUS
     Route: 058
  14. ARAVA [Suspect]
     Active Substance: LEFLUNOMIDE
     Indication: Product used for unknown indication
     Route: 065
  15. METHOTREXATE [Suspect]
     Active Substance: METHOTREXATE
     Indication: Rheumatoid arthritis
     Dosage: SOLUTION FOR INJECTION
     Route: 065
  16. METHOTREXATE [Suspect]
     Active Substance: METHOTREXATE
     Route: 065
  17. METHOTREXATE [Suspect]
     Active Substance: METHOTREXATE
     Route: 065
  18. METHOTREXATE [Suspect]
     Active Substance: METHOTREXATE
     Route: 065
  19. METHOTREXATE [Suspect]
     Active Substance: METHOTREXATE
     Route: 048
  20. METHOTREXATE [Suspect]
     Active Substance: METHOTREXATE
     Route: 048
  21. METHOTREXATE [Suspect]
     Active Substance: METHOTREXATE
     Route: 058
  22. METHOTREXATE [Suspect]
     Active Substance: METHOTREXATE
     Route: 058
  23. METHOTREXATE [Suspect]
     Active Substance: METHOTREXATE
     Route: 065
  24. METHOTREXATE [Suspect]
     Active Substance: METHOTREXATE
     Route: 065
  25. METHOTREXATE [Suspect]
     Active Substance: METHOTREXATE
     Route: 065
  26. METHOTREXATE [Suspect]
     Active Substance: METHOTREXATE
     Route: 065
  27. ACTEMRA [Suspect]
     Active Substance: TOCILIZUMAB
     Indication: Product used for unknown indication
     Route: 065
  28. ACTEMRA [Suspect]
     Active Substance: TOCILIZUMAB
     Indication: Product used for unknown indication
     Route: 042
  29. ORENCIA [Suspect]
     Active Substance: ABATACEPT
     Indication: Rheumatoid arthritis
     Route: 065
  30. ORENCIA [Suspect]
     Active Substance: ABATACEPT
     Route: 042
  31. XELJANZ [Concomitant]
     Active Substance: TOFACITINIB CITRATE
     Indication: Product used for unknown indication
     Route: 048
     Dates: start: 20160125
  32. XELJANZ [Concomitant]
     Active Substance: TOFACITINIB CITRATE
     Route: 065
  33. CYMBALTA [Concomitant]
     Active Substance: DULOXETINE HYDROCHLORIDE
     Indication: Product used for unknown indication
  34. METHOTREXATE [Concomitant]
     Active Substance: METHOTREXATE
     Indication: Rheumatoid arthritis
     Route: 048

REACTIONS (7)
  - Viral infection [Unknown]
  - Sleep disorder [Unknown]
  - Drug ineffective [Unknown]
  - Therapeutic product effect incomplete [Unknown]
  - Therapeutic product effect decreased [Unknown]
  - Therapeutic product effect incomplete [Unknown]
  - Rheumatoid arthritis [Unknown]
